FAERS Safety Report 11965974 (Version 1)
Quarter: 2016Q1

REPORT INFORMATION
  Report Type: Spontaneous
  Country: US (occurrence: US)
  Receive Date: 20160127
  Receipt Date: 20160127
  Transmission Date: 20160526
  Serious: No
  Sender: FDA-Public Use
  Company Number: US-MYLANLABS-2015M1008556

PATIENT
  Age: 75 Year
  Sex: Female
  Weight: 70.75 kg

DRUGS (2)
  1. BISOPROLOL FUMARATE TABLETS, USP [Suspect]
     Active Substance: BISOPROLOL FUMARATE
     Indication: CARDIAC DISORDER
     Dosage: 10 MG, QD
     Route: 048
     Dates: start: 20150225
  2. BISOPROLOL FUMARATE TABLETS, USP [Suspect]
     Active Substance: BISOPROLOL FUMARATE
     Indication: OFF LABEL USE

REACTIONS (1)
  - Drug ineffective for unapproved indication [Not Recovered/Not Resolved]

NARRATIVE: CASE EVENT DATE: 20150225
